FAERS Safety Report 8680892 (Version 2)
Quarter: 2015Q2

REPORT INFORMATION
  Report Type: Report from Study
  Country: US (occurrence: US)
  Receive Date: 20120724
  Receipt Date: 20150624
  Transmission Date: 20150821
  Serious: Yes (Death)
  Sender: FDA-Public Use
  Company Number: US-ROCHE-1089458

PATIENT
  Age: 54 Year
  Sex: Male

DRUGS (3)
  1. TRIDIL [Concomitant]
     Active Substance: NITROGLYCERIN
  2. HEPARIN [Concomitant]
     Active Substance: HEPARIN SODIUM
  3. ACTIVASE [Suspect]
     Active Substance: ALTEPLASE
     Indication: PRODUCT USED FOR UNKNOWN INDICATION
     Route: 065

REACTIONS (1)
  - Death [Fatal]

NARRATIVE: CASE EVENT DATE: 19910722
